FAERS Safety Report 5636965-X (Version None)
Quarter: 2008Q1

REPORT INFORMATION
  Report Type: 
  Country: None (occurrence: None)
  Receive Date: 20080225
  Receipt Date: 20080125
  Transmission Date: 20080703
  Serious: No
  Sender: FDA-Public Use
  Company Number: BR-AVENTIS-200811390GDDC

PATIENT
  Age: 26 Year
  Sex: Female
  Weight: 47 kg

DRUGS (4)
  1. ARAVA [Suspect]
     Indication: RHEUMATOID ARTHRITIS
     Dosage: DOSE QUANTITY: 1
     Route: 048
     Dates: start: 20050101, end: 20071225
  2. UNKNOWN DRUG [Concomitant]
     Indication: ARTHRITIS
     Route: 048
     Dates: start: 20070101
  3. FOLIC ACID [Concomitant]
     Indication: ARTHRITIS
     Dosage: DOSE QUANTITY: 1
     Dates: start: 20070101
  4. PREDNISONE TAB [Concomitant]
     Indication: ARTHRITIS
     Dosage: DOSE QUANTITY: 1
     Route: 048
     Dates: start: 20070101

REACTIONS (1)
  - DRUG EXPOSURE DURING PREGNANCY [None]
